FAERS Safety Report 4618089-3 (Version None)
Quarter: 2005Q1

REPORT INFORMATION
  Report Type: 
  Country: None (occurrence: None)
  Receive Date: 20050322
  Receipt Date: 20050311
  Transmission Date: 20050727
  Serious: Yes (Death)
  Sender: FDA-Public Use
  Company Number: NUBN20050007

PATIENT
  Sex: Male
  Weight: 2.9 kg

DRUGS (2)
  1. NUBAIN [Suspect]
     Dosage: 20 MG ONCE T-PLAC
     Dates: start: 20041219, end: 20041219
  2. PERFALGAN [Suspect]
     Dosage: 1 G ONCE T-PLAC
     Dates: start: 20041219, end: 20041219

REACTIONS (3)
  - CARDIO-RESPIRATORY ARREST NEONATAL [None]
  - DEATH NEONATAL [None]
  - DRUG EXPOSURE DURING PREGNANCY [None]
